FAERS Safety Report 8180704-8 (Version None)
Quarter: 2012Q1

REPORT INFORMATION
  Report Type: 
  Country: None (occurrence: None)
  Receive Date: 20120302
  Receipt Date: 20120223
  Transmission Date: 20120608
  Serious: No
  Sender: FDA-Public Use
  Company Number: US-JNJFOC-20120212939

PATIENT
  Age: 39 Year
  Sex: Male
  Weight: 77.11 kg

DRUGS (2)
  1. FENTANYL-100 [Suspect]
     Route: 062
  2. FENTANYL-100 [Suspect]
     Indication: PRODUCT USED FOR UNKNOWN INDICATION
     Route: 062
     Dates: start: 20100101

REACTIONS (4)
  - WRONG TECHNIQUE IN DRUG USAGE PROCESS [None]
  - POOR QUALITY DRUG ADMINISTERED [None]
  - PRODUCT ADHESION ISSUE [None]
  - DERMATITIS CONTACT [None]
